FAERS Safety Report 6643783-2 (Version None)
Quarter: 2010Q1

REPORT INFORMATION
  Report Type: 
  Country: None (occurrence: None)
  Receive Date: 20100322
  Receipt Date: 20100308
  Transmission Date: 20100710
  Serious: No
  Sender: FDA-Public Use
  Company Number: US-B.I. PHARMACEUTICALS,INC./RIDGEFIELD-2010-BP-01899BP

PATIENT
  Age: 66 Year
  Sex: Female
  Weight: 108.86 kg

DRUGS (4)
  1. SPIRIVA [Suspect]
     Indication: CHRONIC OBSTRUCTIVE PULMONARY DISEASE
     Route: 055
  2. UNIRETIC [Concomitant]
  3. CELEBREX [Concomitant]
  4. PROZAC [Concomitant]

REACTIONS (1)
  - OEDEMA PERIPHERAL [None]
